FAERS Safety Report 15496078 (Version 2)
Quarter: 2020Q3

REPORT INFORMATION
  Report Type: Spontaneous
  Country: DK (occurrence: DK)
  Receive Date: 20181012
  Receipt Date: 20200924
  Transmission Date: 20201102
  Serious: Yes (Death, Hospitalization)
  Sender: FDA-Public Use
  Company Number: PHHY2018DK123419

PATIENT
  Age: 62 Year
  Sex: Male
  Weight: 72 kg

DRUGS (2)
  1. FOLINSYRE SAD [Concomitant]
     Indication: FOLATE DEFICIENCY
     Dosage: 10 MG, UNK (STYRKE: 5 MG)
     Route: 048
     Dates: start: 20170629, end: 201802
  2. METHOTREXATE (METHOTREXATE SODIUM) [Suspect]
     Active Substance: METHOTREXATE SODIUM
     Indication: RHEUMATOID ARTHRITIS
     Dosage: 15 MG, UNK (STYRKE: 2,5 MG)
     Route: 048
     Dates: start: 20170629, end: 201802

REACTIONS (10)
  - Multiple organ dysfunction syndrome [Fatal]
  - Abdominal pain [Not Recovered/Not Resolved]
  - Haematemesis [Unknown]
  - Varices oesophageal [Not Recovered/Not Resolved]
  - Faeces discoloured [Unknown]
  - Discomfort [Not Recovered/Not Resolved]
  - Primary biliary cholangitis [Fatal]
  - Hepatic cirrhosis [Fatal]
  - Bleeding varicose vein [Fatal]
  - Ascites [Unknown]

NARRATIVE: CASE EVENT DATE: 201706
